FAERS Safety Report 4659423-8 (Version None)
Quarter: 2005Q2

REPORT INFORMATION
  Report Type: 
  Country: None (occurrence: None)
  Receive Date: 20050412
  Receipt Date: 20050111
  Transmission Date: 20051028
  Serious: No
  Sender: FDA-Public Use
  Company Number: 2005S1000014

PATIENT
  Age: 60 Year
  Sex: Female
  Weight: 80.9 kg

DRUGS (11)
  1. CUBICIN [Suspect]
     Indication: ARTHRITIS BACTERIAL
     Dosage: 400 MG; Q24H; IV
     Route: 042
     Dates: start: 20041104, end: 20041215
  2. MOTRIN [Suspect]
     Indication: ARTHRALGIA
     Dosage: 800 MG; BID; PO
     Route: 048
     Dates: start: 20041204
  3. MOTRIN [Suspect]
     Indication: ARTHRITIS
     Dosage: 800 MG; BID; PO
     Route: 048
     Dates: start: 20041204
  4. TOPROL-XL [Concomitant]
  5. MAXZIDE [Concomitant]
  6. POTASSIUM CHLORIDE [Concomitant]
  7. PAXIL [Concomitant]
  8. COUMADIN [Concomitant]
  9. NIACIN [Concomitant]
  10. PERCOCET [Concomitant]
  11. TYLENOL (CAPLET) [Concomitant]

REACTIONS (3)
  - DRUG INTERACTION [None]
  - DYSKINESIA [None]
  - MUSCLE TWITCHING [None]
